FAERS Safety Report 13424797 (Version 5)
Quarter: 2018Q2

REPORT INFORMATION
  Report Type: Report from Study
  Country: US (occurrence: US)
  Receive Date: 20170410
  Receipt Date: 20180618
  Transmission Date: 20180711
  Serious: Yes (Hospitalization)
  Sender: FDA-Public Use
  Company Number: US-ACTELION-A-US2016-142805

PATIENT
  Age: 68 Year
  Sex: Female

DRUGS (19)
  1. COUMADIN [Concomitant]
     Active Substance: WARFARIN SODIUM
     Dosage: 7.5 MG, UNK
     Dates: start: 20100129
  2. METOPROLOL. [Concomitant]
     Active Substance: METOPROLOL
     Dosage: 100 MG, UNK
     Dates: start: 20100129
  3. METOPROLOL. [Concomitant]
     Active Substance: METOPROLOL
     Dosage: 25 MG, UNK
     Dates: start: 20100902
  4. POTASSIUM CHLORIDE. [Concomitant]
     Active Substance: POTASSIUM CHLORIDE
     Dosage: 10 MEQ, UNK
     Dates: start: 20100129
  5. LASIX [Concomitant]
     Active Substance: FUROSEMIDE
     Dosage: 40 MG, UNK
     Dates: start: 20100129
  6. SIMVASTATIN. [Concomitant]
     Active Substance: SIMVASTATIN
     Dosage: 20 MG, UNK
     Dates: start: 20100129, end: 20180408
  7. CELEBREX [Concomitant]
     Active Substance: CELECOXIB
     Dosage: 200 MG, UNK
     Dates: start: 20100129
  8. SPIRIVA [Concomitant]
     Active Substance: TIOTROPIUM BROMIDE MONOHYDRATE
  9. CELECOXIB. [Concomitant]
     Active Substance: CELECOXIB
     Dosage: 200 MG, UNK
     Dates: start: 20170821, end: 20180409
  10. COLESTIPOL [Concomitant]
     Active Substance: COLESTIPOL
     Dosage: 200 MG, UNK
     Dates: start: 20100129
  11. DALIRESP [Concomitant]
     Active Substance: ROFLUMILAST
     Dosage: 500 UNK, UNK
     Dates: start: 20171001
  12. SYMBICORT [Concomitant]
     Active Substance: BUDESONIDE\FORMOTEROL FUMARATE DIHYDRATE
     Dosage: 160/4.5
     Dates: start: 20100129
  13. LORAZEPAM. [Concomitant]
     Active Substance: LORAZEPAM
     Dosage: 0.5 MG, UNK
     Dates: start: 20180208, end: 20180407
  14. TRACLEER [Suspect]
     Active Substance: BOSENTAN
     Indication: PULMONARY ARTERIAL HYPERTENSION
     Dosage: 125 MG, BID
     Route: 048
     Dates: start: 20100209
  15. TRACLEER [Suspect]
     Active Substance: BOSENTAN
     Dosage: 125 MG, BID
     Route: 048
     Dates: start: 20130808, end: 20180606
  16. SERTRALINE [Concomitant]
     Active Substance: SERTRALINE HYDROCHLORIDE
  17. LEVALBUTEROL. [Concomitant]
     Active Substance: LEVALBUTEROL
     Dosage: 1.25 MG, UNK
     Dates: start: 20180213
  18. SPIRONOLACTONE. [Concomitant]
     Active Substance: SPIRONOLACTONE
  19. ZOLPIDEM [Concomitant]
     Active Substance: ZOLPIDEM\ZOLPIDEM TARTRATE
     Dosage: 10 MG, UNK
     Dates: start: 20081111

REACTIONS (5)
  - Atrial fibrillation [Not Recovered/Not Resolved]
  - Drug dose omission [Recovered/Resolved]
  - Drug ineffective [Not Recovered/Not Resolved]
  - Memory impairment [Recovered/Resolved]
  - Nasopharyngitis [Unknown]

NARRATIVE: CASE EVENT DATE: 20161212
